FAERS Safety Report 14913312 (Version 2)
Quarter: 2018Q2

REPORT INFORMATION
  Report Type: Report from Study
  Country: US (occurrence: BE)
  Receive Date: 20180518
  Receipt Date: 20180524
  Transmission Date: 20180711
  Serious: Yes (Hospitalization, Other)
  Sender: FDA-Public Use
  Company Number: US-SUNOVION-2018SUN001961

PATIENT

DRUGS (3)
  1. INDACATEROL [Suspect]
     Active Substance: INDACATEROL
     Indication: PRODUCT USED FOR UNKNOWN INDICATION
     Dosage: 1 DF, QD
     Route: 055
     Dates: start: 20180215
  2. ENTRESTO [Suspect]
     Active Substance: SACUBITRIL\VALSARTAN
     Dosage: 50 MG (SACUBITRIL 49MG/VALSARTAN 51MG)
     Route: 048
     Dates: start: 20180218
  3. ENTRESTO [Suspect]
     Active Substance: SACUBITRIL\VALSARTAN
     Indication: CARDIAC FAILURE
     Dosage: 50 MG (SACUBITRIL 49MG/VALSARTAN 51MG)
     Route: 048
     Dates: start: 20170610, end: 20180215

REACTIONS (11)
  - Gastroenteritis [Not Recovered/Not Resolved]
  - Acute kidney injury [Recovered/Resolved]
  - Hypotension [Not Recovered/Not Resolved]
  - Blood creatinine increased [Unknown]
  - Anaemia [Not Recovered/Not Resolved]
  - Pancytopenia [Recovered/Resolved]
  - Dyspnoea [Not Recovered/Not Resolved]
  - Diarrhoea [Recovered/Resolved]
  - C-reactive protein increased [Not Recovered/Not Resolved]
  - Chronic obstructive pulmonary disease [Unknown]
  - Erysipelas [Recovered/Resolved]

NARRATIVE: CASE EVENT DATE: 20180209
